FAERS Safety Report 6088791-8 (Version None)
Quarter: 2009Q1

REPORT INFORMATION
  Report Type: 
  Country: None (occurrence: None)
  Receive Date: 20090219
  Receipt Date: 20090213
  Transmission Date: 20090719
  Serious: Yes (Hospitalization)
  Sender: FDA-Public Use
  Company Number: 09IT001135

PATIENT
  Age: 88 Year
  Sex: Female

DRUGS (4)
  1. PAROXETINE HCL [Suspect]
     Indication: DEPRESSION
     Dosage: 20 MG, QD, ORAL
     Route: 048
     Dates: start: 20080527, end: 20080601
  2. VALSARTAN [Concomitant]
  3. TORSEMIDE [Concomitant]
  4. LORAZEPAM [Concomitant]

REACTIONS (3)
  - DISORIENTATION [None]
  - MALAISE [None]
  - MUSCULAR WEAKNESS [None]
